FAERS Safety Report 8173079-1 (Version None)
Quarter: 2012Q1

REPORT INFORMATION
  Report Type: 
  Country: None (occurrence: None)
  Receive Date: 20120223
  Receipt Date: 20120208
  Transmission Date: 20120608
  Serious: Yes (Hospitalization)
  Sender: FDA-Public Use
  Company Number: JPI-P-019741

PATIENT
  Age: 46 Year
  Sex: Female
  Weight: 74.8435 kg

DRUGS (11)
  1. BUDESONIDE [Concomitant]
  2. ARMODAFINIL [Concomitant]
  3. ARIPIPRAZOLE [Concomitant]
  4. PREGABALIN [Concomitant]
  5. XYREM [Suspect]
     Indication: CATAPLEXY
     Dosage: 4.5 GM (2.25 GM, 2 IN 1 D), ORAL 7.5 GM (3.75 GM, 3 IN 1 D), ORAL 9 GM (4.5 GM, 2 IN 1 D), ORAL
     Route: 048
     Dates: start: 20110425
  6. XYREM [Suspect]
     Indication: CATAPLEXY
     Dosage: 4.5 GM (2.25 GM, 2 IN 1 D), ORAL 7.5 GM (3.75 GM, 3 IN 1 D), ORAL 9 GM (4.5 GM, 2 IN 1 D), ORAL
     Route: 048
     Dates: end: 20111201
  7. XYREM [Suspect]
     Indication: CATAPLEXY
     Dosage: 4.5 GM (2.25 GM, 2 IN 1 D), ORAL 7.5 GM (3.75 GM, 3 IN 1 D), ORAL 9 GM (4.5 GM, 2 IN 1 D), ORAL
     Route: 048
     Dates: start: 20110324, end: 20110424
  8. ESTRADIOL VALERATE [Concomitant]
  9. TOPIRAMATE [Concomitant]
  10. ESCITALOPRAM OXALATE [Concomitant]
  11. FENTANL (POULTICE OR PATCH) [Concomitant]

REACTIONS (6)
  - HEAD INJURY [None]
  - PARALYSIS [None]
  - CATAPLEXY [None]
  - FATIGUE [None]
  - HAEMORRHAGE INTRACRANIAL [None]
  - FALL [None]
